FAERS Safety Report 24036448 (Version 3)
Quarter: 2024Q3

REPORT INFORMATION
  Report Type: Spontaneous
  Country: UA (occurrence: UA)
  Receive Date: 20240701
  Receipt Date: 20240812
  Transmission Date: 20241017
  Serious: Yes (Death, Life-Threatening, Other)
  Sender: BAYER
  Company Number: UA-BAYER-2024A094585

PATIENT
  Age: 47 Year
  Sex: Male

DRUGS (1)
  1. ULTRAVIST [Suspect]
     Active Substance: IOPROMIDE
     Indication: Vascular malformation
     Dosage: 100 ML, ONCE
     Route: 042
     Dates: start: 20240621, end: 20240621

REACTIONS (7)
  - Brain oedema [Fatal]
  - Respiratory arrest [None]
  - Ischaemic stroke [None]
  - Coma [None]
  - Loss of consciousness [None]
  - Headache [None]
  - Dizziness [None]

NARRATIVE: CASE EVENT DATE: 20240621
